FAERS Safety Report 4324827-X (Version None)
Quarter: 2004Q1

REPORT INFORMATION
  Report Type: 
  Country: None (occurrence: None)
  Receive Date: 20040323
  Receipt Date: 20040317
  Transmission Date: 20041129
  Serious: Yes (Hospitalization, Disabling)
  Sender: FDA-Public Use
  Company Number: 2004-03-1129

PATIENT
  Age: 68 Year
  Sex: Female
  Weight: 40 kg

DRUGS (5)
  1. NEOCLARITYN (DESLORATADINE) TABLETS [Suspect]
     Indication: RHINITIS ALLERGIC
     Dosage: 5MG ORAL
     Route: 048
     Dates: start: 20030620, end: 20040204
  2. BENDROFLUAZIDE [Concomitant]
  3. CLOPIDOGREL [Concomitant]
  4. OMEPRAZOLE [Concomitant]
  5. PERINDOPRIL [Concomitant]

REACTIONS (2)
  - DISEASE RECURRENCE [None]
  - HYPOGLYCAEMIA [None]
